FAERS Safety Report 10423856 (Version 1)
Quarter: 2014Q3

REPORT INFORMATION
  Report Type: Spontaneous
  Country: DE (occurrence: DE)
  Receive Date: 20140902
  Receipt Date: 20140902
  Transmission Date: 20150326
  Serious: Yes (Congenital Anomaly, Other)
  Sender: FDA-Public Use
  Company Number: DE-WATSON-2014-18766

PATIENT
  Age: 1 Day
  Sex: Female
  Weight: 1.92 kg

DRUGS (2)
  1. FOLIO FORTE [Concomitant]
     Active Substance: FOLIC ACID\VITAMINS
     Indication: PROPHYLAXIS OF NEURAL TUBE DEFECT
     Dosage: 0.8 MG, DAILY
     Route: 064
     Dates: start: 20120116, end: 20121006
  2. METOPROLOL (UNKNOWN) [Suspect]
     Active Substance: METOPROLOL
     Indication: MIGRAINE PROPHYLAXIS
     Dosage: 100 MG, DAILY
     Route: 064
     Dates: start: 20120116, end: 20121006

REACTIONS (3)
  - Foetal exposure during pregnancy [Recovered/Resolved]
  - Microcephaly [Recovered/Resolved]
  - Small for dates baby [Recovered/Resolved]

NARRATIVE: CASE EVENT DATE: 20121006
